FAERS Safety Report 6681056-2 (Version None)
Quarter: 2010Q2

REPORT INFORMATION
  Report Type: 
  Country: None (occurrence: None)
  Receive Date: 20100414
  Receipt Date: 20100409
  Transmission Date: 20101027
  Serious: Yes (Death, Hospitalization)
  Sender: FDA-Public Use
  Company Number: JP-ROCHE-638201

PATIENT
  Sex: Female

DRUGS (28)
  1. TOCILIZUMAB [Suspect]
     Indication: RHEUMATOID ARTHRITIS
     Route: 041
     Dates: start: 20081128, end: 20081128
  2. TOCILIZUMAB [Suspect]
     Route: 041
     Dates: start: 20081226, end: 20081226
  3. TOCILIZUMAB [Suspect]
     Route: 041
     Dates: start: 20090123, end: 20090123
  4. TOCILIZUMAB [Suspect]
     Route: 041
     Dates: start: 20090220, end: 20090220
  5. TOCILIZUMAB [Suspect]
     Route: 041
     Dates: start: 20090318, end: 20090318
  6. TOCILIZUMAB [Suspect]
     Route: 041
     Dates: start: 20090415, end: 20090415
  7. TOCILIZUMAB [Suspect]
     Route: 041
     Dates: start: 20090513, end: 20090513
  8. TOCILIZUMAB [Suspect]
     Route: 041
     Dates: start: 20090610, end: 20090610
  9. RIMATIL [Concomitant]
     Route: 048
     Dates: end: 20090101
  10. PREDNISOLONE [Concomitant]
     Dosage: DOSE FORM: PERORAL AGENT
     Route: 048
     Dates: end: 20050101
  11. PREDNISOLONE [Concomitant]
     Dosage: DOSE FORM: PERORAL AGENT
     Route: 048
     Dates: start: 20050101
  12. PREDNISOLONE [Concomitant]
     Dosage: DOSE FORM: PERORAL AGENT
     Route: 048
  13. PREDNISOLONE [Concomitant]
     Dosage: DOSE FORM: PERORAL AGENT
     Route: 048
     Dates: start: 20081128, end: 20090219
  14. PREDNISOLONE [Concomitant]
     Dosage: DOSE FORM: PERORAL AGENT
     Route: 048
     Dates: start: 20090220, end: 20090317
  15. PREDNISOLONE [Concomitant]
     Dosage: DOSE FORM: PERORAL AGENT
     Route: 048
     Dates: start: 20090318, end: 20090414
  16. PREDNISOLONE [Concomitant]
     Dosage: DOSE FORM: PERORAL AGENT
     Route: 048
     Dates: start: 20090415, end: 20090101
  17. OMEPRAZOLE [Concomitant]
     Dosage: DOSE FORM: ENTERIC COATING DRUG
     Route: 048
     Dates: end: 20090709
  18. CLARITIN [Concomitant]
     Dosage: DOSE FORM: PERORAL AGENT
     Route: 048
     Dates: end: 20090101
  19. TOCLASE [Concomitant]
     Dosage: DOSE FORM REPORTED AS SUSTAINED RELEASE CAPSULE
     Route: 048
     Dates: end: 20081210
  20. PURSENNID [Concomitant]
     Route: 048
     Dates: end: 20090802
  21. MUCODYNE [Concomitant]
     Dosage: DOSE FORM: PERORAL AGENT
     Route: 048
     Dates: end: 20090802
  22. MUCOSOLVAN [Concomitant]
     Dosage: DOSE FORM: PERORAL AGENT
     Route: 048
     Dates: end: 20090802
  23. LENDORMIN [Concomitant]
     Route: 048
     Dates: end: 20090101
  24. QVAR 40 [Concomitant]
     Dosage: FORM: REPORTED AS RESPIRATORY TONIC
     Route: 055
     Dates: end: 20090101
  25. ZYRTEC [Concomitant]
     Route: 048
     Dates: start: 20090410, end: 20090415
  26. HOKUNALIN [Concomitant]
     Dosage: DOSE FORM: TAPE, NOTE: PROPER QUANTITY
     Route: 062
     Dates: start: 20090122, end: 20090101
  27. CELCOX [Concomitant]
     Route: 048
     Dates: start: 20090220, end: 20090101
  28. ALLEGRA [Concomitant]
     Route: 048
     Dates: start: 20090513, end: 20090802

REACTIONS (6)
  - DECUBITUS ULCER [None]
  - LARYNGEAL OEDEMA [None]
  - PARONYCHIA [None]
  - PERITONITIS BACTERIAL [None]
  - PYOTHORAX [None]
  - SUPRAVENTRICULAR TACHYCARDIA [None]
